FAERS Safety Report 4933372-X (Version None)
Quarter: 2006Q1

REPORT INFORMATION
  Report Type: 
  Country: None (occurrence: None)
  Receive Date: 20060306
  Receipt Date: 20050923
  Transmission Date: 20060701
  Serious: Yes (Hospitalization)
  Sender: FDA-Public Use
  Company Number: US-MERCK-0509USA03940

PATIENT
  Age: 75 Year
  Sex: Male
  Weight: 84 kg

DRUGS (2)
  1. VIOXX [Suspect]
     Indication: ARTHRITIS
     Route: 048
     Dates: end: 20040501
  2. ECOTRIN [Concomitant]
     Route: 065

REACTIONS (6)
  - BACK PAIN [None]
  - CEREBROVASCULAR ACCIDENT [None]
  - HERNIA [None]
  - INJURY [None]
  - MYOCARDIAL INFARCTION [None]
  - SUDDEN DEATH [None]
